FAERS Safety Report 8266435-4 (Version None)
Quarter: 2012Q2

REPORT INFORMATION
  Report Type: 
  Country: None (occurrence: None)
  Receive Date: 20120406
  Receipt Date: 20120404
  Transmission Date: 20120825
  Serious: Yes (Disabling)
  Sender: FDA-Public Use
  Company Number: GB-MERCK-1204GBR00020

PATIENT
  Age: 89 Year
  Sex: Male

DRUGS (8)
  1. OMEPRAZOLE [Concomitant]
     Route: 048
  2. CALCIUM CARBONATE [Concomitant]
     Indication: OSTEOPOROSIS
     Route: 065
  3. CITALOPRAM [Concomitant]
     Route: 048
  4. CYANOCOBALAMIN [Concomitant]
     Route: 048
  5. ACETAMINOPHEN [Concomitant]
     Route: 048
  6. HYDROXYUREA [Concomitant]
     Indication: THROMBOCYTOSIS
     Route: 048
  7. FOSAMAX [Suspect]
     Indication: OSTEOPOROSIS
     Route: 048
     Dates: end: 20120112
  8. BUDESONIDE AND FORMOTEROL FUMARATE [Concomitant]
     Indication: ASTHMA
     Route: 055

REACTIONS (4)
  - ORAL MUCOSAL ERYTHEMA [None]
  - LIP EXFOLIATION [None]
  - LIP ULCERATION [None]
  - MOUTH ULCERATION [None]
